FAERS Safety Report 16582052 (Version 2)
Quarter: 2019Q3

REPORT INFORMATION
  Report Type: Spontaneous
  Country: DE (occurrence: DE)
  Receive Date: 20190717
  Receipt Date: 20190816
  Transmission Date: 20191004
  Serious: Yes (Other)
  Sender: FDA-Public Use
  Company Number: PHHY2019DE164009

PATIENT
  Age: 80 Year
  Sex: Male

DRUGS (4)
  1. MIRTAZAPIN 1A PHARMA [Suspect]
     Active Substance: MIRTAZAPINE
     Dosage: 15 MG, UNK
     Route: 065
     Dates: start: 201905
  2. LISINOPRIL 1A PHARMA [Suspect]
     Active Substance: LISINOPRIL
     Indication: HYPERTENSION
     Dosage: 10 OT, UNK
     Route: 065
  3. MIRTAZAPIN 1A PHARMA [Suspect]
     Active Substance: MIRTAZAPINE
     Indication: PRODUCT USED FOR UNKNOWN INDICATION
     Dosage: 15 MG, UNK
     Route: 065
  4. ATORVASTATIN - 1 A PHARMA [Suspect]
     Active Substance: ATORVASTATIN
     Indication: PRODUCT USED FOR UNKNOWN INDICATION
     Dosage: 10 MG, UNK (HALF OF 20 MG)
     Route: 065

REACTIONS (2)
  - Glaucoma [Unknown]
  - Abdominal pain [Unknown]
